FAERS Safety Report 9825769 (Version 1)
Quarter: 2014Q1

REPORT INFORMATION
  Report Type: Spontaneous
  Country: US (occurrence: US)
  Receive Date: 20140117
  Receipt Date: 20140117
  Transmission Date: 20141002
  Serious: Yes (Hospitalization)
  Sender: FDA-Public Use
  Company Number: US-JNJFOC-20140104929

PATIENT
  Age: 60 Year
  Sex: Female
  Weight: 48.08 kg

DRUGS (7)
  1. CONCERTA [Suspect]
     Indication: ATTENTION DEFICIT/HYPERACTIVITY DISORDER
     Route: 048
     Dates: start: 2004
  2. METHYLPHENIDATE [Suspect]
     Indication: ATTENTION DEFICIT/HYPERACTIVITY DISORDER
     Route: 048
  3. DILAUDID [Concomitant]
     Indication: SPINAL PAIN
     Route: 048
     Dates: start: 2012
  4. METHADONE [Concomitant]
     Indication: SPINAL PAIN
     Route: 048
     Dates: start: 2013
  5. VALIUM [Concomitant]
     Indication: SPINAL PAIN
     Dosage: 5MG-DAILY EVENING
     Route: 048
     Dates: start: 2011
  6. RANITIDINE [Concomitant]
     Indication: GASTROOESOPHAGEAL REFLUX DISEASE
     Route: 048
     Dates: start: 2013
  7. CYCLOBENZAPRINE [Concomitant]
     Indication: SPINAL PAIN
     Route: 048
     Dates: start: 2013

REACTIONS (5)
  - Intervertebral disc degeneration [Unknown]
  - Sinus disorder [Recovered/Resolved]
  - Nausea [Not Recovered/Not Resolved]
  - Drug screen positive [Recovered/Resolved]
  - Nasopharyngitis [Recovered/Resolved]
